FAERS Safety Report 4318075-7 (Version None)
Quarter: 2004Q1

REPORT INFORMATION
  Report Type: 
  Country: None (occurrence: None)
  Receive Date: 20040315
  Receipt Date: 20040223
  Transmission Date: 20041129
  Serious: Yes (Hospitalization)
  Sender: FDA-Public Use
  Company Number: F01200400148

PATIENT
  Age: 70 Year
  Sex: Male

DRUGS (6)
  1. OXALIPLATIN - SOLUTION - 85 MG/M2 [Suspect]
     Indication: COLORECTAL CANCER
     Dosage: 85 MG/M2 Q2W
     Route: 042
     Dates: start: 20031105, end: 20031105
  2. FLUOROURACIL [Suspect]
     Dosage: SEE IMAGE
     Route: 042
     Dates: start: 20031110, end: 20031110
  3. LEUCOVORIN CALCIUM [Suspect]
     Dosage: 350 MG Q2W, INTRAVENOUS NOS
     Route: 042
     Dates: start: 20031105, end: 20031105
  4. SENNOSIDE (SENNA) [Concomitant]
  5. DIPIVEFRIN (DIPIVEFRINE) [Concomitant]
  6. DORZOLAMIDE [Concomitant]

REACTIONS (9)
  - ACTIVATED PARTIAL THROMBOPLASTIN TIME PROLONGED [None]
  - AORTIC CALCIFICATION [None]
  - AORTIC DISORDER [None]
  - ARTERIOSCLEROSIS [None]
  - DEEP VEIN THROMBOSIS [None]
  - DEVICE FAILURE [None]
  - HEPATIC STEATOSIS [None]
  - INGUINAL HERNIA [None]
  - VASCULAR CALCIFICATION [None]
